FAERS Safety Report 9635912 (Version 2)
Quarter: 2013Q4

REPORT INFORMATION
  Report Type: Spontaneous
  Country: US (occurrence: US)
  Receive Date: 20131021
  Receipt Date: 20131021
  Transmission Date: 20140711
  Serious: No
  Sender: FDA-Public Use
  Company Number: US-PURDUE-USA-2013-0102909

PATIENT
  Sex: Female

DRUGS (2)
  1. BUTRANS [Suspect]
     Indication: PAIN
     Dosage: 10 MCG/HR, WEEKLY
     Route: 062
  2. LORTAB                             /00607101/ [Concomitant]
     Indication: BREAKTHROUGH PAIN
     Dosage: 7.5 MG, UNK
     Route: 048

REACTIONS (3)
  - Drug withdrawal syndrome [Unknown]
  - Pain [Unknown]
  - Drug effect decreased [Unknown]
